FAERS Safety Report 19101446 (Version 1)
Quarter: 2021Q2

REPORT INFORMATION
  Report Type: Spontaneous
  Country: FR (occurrence: FR)
  Receive Date: 20210407
  Receipt Date: 20210407
  Transmission Date: 20210717
  Serious: Yes (Hospitalization)
  Sender: FDA-Public Use
  Company Number: FR-AUROBINDO-AUR-APL-2021-013944

PATIENT
  Sex: Female

DRUGS (4)
  1. CARMUSTINE. [Suspect]
     Active Substance: CARMUSTINE
     Indication: NON-HODGKIN^S LYMPHOMA
     Dosage: 513 MILLIGRAM, ONCE A DAY
     Route: 042
     Dates: start: 20160520, end: 20160520
  2. CYTARABINE. [Suspect]
     Active Substance: CYTARABINE
     Indication: NON-HODGKIN^S LYMPHOMA
     Dosage: 684 MILLIGRAM, ONCE A DAY
     Route: 042
     Dates: start: 20160521, end: 20160524
  3. MELPHALAN. [Suspect]
     Active Substance: MELPHALAN
     Indication: NON-HODGKIN^S LYMPHOMA
     Dosage: 239.4 MILLIGRAM, ONCE A DAY
     Route: 042
     Dates: start: 20160525, end: 20160525
  4. ETOPOSIDE. [Suspect]
     Active Substance: ETOPOSIDE
     Indication: NON-HODGKIN^S LYMPHOMA
     Dosage: 684 MILLIGRAM, ONCE A DAY
     Route: 042
     Dates: start: 20160521, end: 20160524

REACTIONS (4)
  - Infection [Recovered/Resolved]
  - Aplasia [Recovered/Resolved]
  - Diarrhoea [Recovered/Resolved]
  - Mucosal inflammation [Recovered/Resolved]

NARRATIVE: CASE EVENT DATE: 20160529
